FAERS Safety Report 6463278-9 (Version None)
Quarter: 2009Q4

REPORT INFORMATION
  Report Type: 
  Country: None (occurrence: None)
  Receive Date: 20091130
  Receipt Date: 20090617
  Transmission Date: 20100525
  Serious: Yes (Other)
  Sender: FDA-Public Use
  Company Number: US-AMGEN-QUU352023

PATIENT
  Sex: Female

DRUGS (3)
  1. ENBREL [Suspect]
     Indication: RHEUMATOID ARTHRITIS
     Route: 058
     Dates: start: 20010101
  2. SULFASALAZINE [Concomitant]
  3. LEFLUNOMIDE [Concomitant]
     Route: 048

REACTIONS (7)
  - DYSPNOEA [None]
  - INJECTION SITE PAIN [None]
  - LUNG INFECTION [None]
  - RASH [None]
  - SINUS CONGESTION [None]
  - SINUS HEADACHE [None]
  - WHEEZING [None]
